FAERS Safety Report 15157050 (Version 1)
Quarter: 2018Q3

REPORT INFORMATION
  Report Type: Report from Study
  Country: IT (occurrence: IT)
  Receive Date: 20180718
  Receipt Date: 20180718
  Transmission Date: 20181010
  Serious: Yes (Other)
  Sender: FDA-Public Use
  Company Number: IT-TEVA-2018-IT-926349

PATIENT

DRUGS (3)
  1. LITHIUM. [Suspect]
     Active Substance: LITHIUM
     Dosage: THE TREATMENT WAS STOPPED AT 5 WEEKS OF GESTATION
     Route: 064
  2. VALPROIC ACID. [Concomitant]
     Active Substance: VALPROIC ACID
     Route: 064
  3. LAMOTRIGINE. [Concomitant]
     Active Substance: LAMOTRIGINE
     Route: 064

REACTIONS (3)
  - Neonatal respiratory distress [Unknown]
  - Live birth [Unknown]
  - Foetal exposure during pregnancy [Unknown]
